FAERS Safety Report 12155512 (Version 2)
Quarter: 2016Q1

REPORT INFORMATION
  Report Type: Report from Study
  Country: US (occurrence: US)
  Receive Date: 20160307
  Receipt Date: 20160307
  Transmission Date: 20160526
  Serious: Yes (Hospitalization)
  Sender: FDA-Public Use
  Company Number: US-SA-2016SA022160

PATIENT
  Age: 36 Year
  Sex: Female

DRUGS (1)
  1. LEMTRADA [Suspect]
     Active Substance: ALEMTUZUMAB
     Indication: MULTIPLE SCLEROSIS
     Route: 041
     Dates: start: 20160118, end: 20160122

REACTIONS (12)
  - Chest pain [Not Recovered/Not Resolved]
  - Back pain [Unknown]
  - Blood urine present [Unknown]
  - Oral candidiasis [Recovered/Resolved]
  - Urinary tract infection [Recovered/Resolved]
  - Cough [Recovering/Resolving]
  - Urine odour abnormal [Unknown]
  - Urine abnormality [Unknown]
  - Pyrexia [Unknown]
  - Vomiting [Not Recovered/Not Resolved]
  - Loss of consciousness [Not Recovered/Not Resolved]
  - Bronchitis [Not Recovered/Not Resolved]

NARRATIVE: CASE EVENT DATE: 201601
